FAERS Safety Report 6134974-8 (Version None)
Quarter: 2009Q1

REPORT INFORMATION
  Report Type: 
  Country: None (occurrence: None)
  Receive Date: 20090325
  Receipt Date: 20090308
  Transmission Date: 20090719
  Serious: Yes (Other)
  Sender: FDA-Public Use
  Company Number: 2006S1004516

PATIENT
  Age: 75 Year
  Sex: Female
  Weight: 60.3284 kg

DRUGS (6)
  1. PHOSPHOSODA GINGER LEMON [Suspect]
     Indication: COLONOSCOPY
     Dosage: PO
     Route: 048
     Dates: start: 20010121, end: 20010121
  2. DULCOLAX  00064401/ [Concomitant]
  3. ZESTRIL [Concomitant]
  4. ALLOPURINOL [Concomitant]
  5. LIPITOR [Concomitant]
  6. BENADRYL [Concomitant]

REACTIONS (5)
  - ABDOMINAL DISCOMFORT [None]
  - ANAEMIA [None]
  - INFLUENZA LIKE ILLNESS [None]
  - MALAISE [None]
  - RENAL FAILURE ACUTE [None]
